FAERS Safety Report 9393524 (Version 4)
Quarter: 2013Q4

REPORT INFORMATION
  Report Type: Spontaneous
  Country: GB (occurrence: GB)
  Receive Date: 20130710
  Receipt Date: 20131111
  Transmission Date: 20140711
  Serious: Yes (Hospitalization)
  Sender: FDA-Public Use
  Company Number: GB-BRISTOL-MYERS SQUIBB COMPANY-19089143

PATIENT
  Age: 15 Year
  Sex: Female
  Weight: 96 kg

DRUGS (5)
  1. METFORMIN HCL [Suspect]
     Indication: POLYCYSTIC OVARIES
     Route: 048
  2. MEFENAMIC ACID [Suspect]
     Indication: DYSMENORRHOEA
     Dosage: TWO OR THREE TIMES PER DAY TWICE A WEEK
     Route: 048
     Dates: start: 201206, end: 201305
  3. MEFENAMIC ACID [Suspect]
     Indication: ABDOMINAL PAIN
     Dosage: TWO OR THREE TIMES PER DAY TWICE A WEEK
     Route: 048
     Dates: start: 201206, end: 201305
  4. MOVICOL [Concomitant]
  5. RANITIDINE [Concomitant]

REACTIONS (6)
  - Pancreatitis acute [Not Recovered/Not Resolved]
  - Dizziness [Unknown]
  - Abdominal pain [Unknown]
  - Vomiting [Unknown]
  - Nausea [Unknown]
  - Off label use [Unknown]
